FAERS Safety Report 25708139 (Version 3)
Quarter: 2025Q3

REPORT INFORMATION
  Report Type: Report from Study
  Country: US (occurrence: US)
  Receive Date: 20250820
  Receipt Date: 20250916
  Transmission Date: 20251021
  Serious: Yes (Other)
  Sender: ABBVIE
  Company Number: US-ABBVIE-6422915

PATIENT
  Age: 51 Year
  Sex: Female

DRUGS (1)
  1. RINVOQ [Suspect]
     Active Substance: UPADACITINIB
     Indication: Colitis microscopic
     Route: 048
     Dates: start: 20250802

REACTIONS (2)
  - Tooth fracture [Unknown]
  - Off label use [Unknown]

NARRATIVE: CASE EVENT DATE: 20250802
